FAERS Safety Report 7948322-1 (Version None)
Quarter: 2011Q4

REPORT INFORMATION
  Report Type: 
  Country: None (occurrence: None)
  Receive Date: 20111130
  Receipt Date: 20111122
  Transmission Date: 20120403
  Serious: Yes (Hospitalization, Other)
  Sender: FDA-Public Use
  Company Number: US-AMGEN-USASP2011056098

PATIENT
  Sex: Female

DRUGS (3)
  1. ANTIHYPERTENSIVES [Concomitant]
     Indication: HYPERTENSION
  2. PROLIA [Suspect]
     Indication: OSTEOPOROSIS POSTMENOPAUSAL
     Dosage: UNK UNK, Q6MO
     Dates: start: 20110318
  3. ANALGESICS [Concomitant]
     Indication: PAIN

REACTIONS (7)
  - CHOLECYSTECTOMY [None]
  - RASH [None]
  - MYALGIA [None]
  - CELLULITIS [None]
  - PRURITUS [None]
  - SEPSIS [None]
  - ARTHRALGIA [None]
